FAERS Safety Report 7623858-1 (Version None)
Quarter: 2011Q3

REPORT INFORMATION
  Report Type: 
  Country: None (occurrence: None)
  Receive Date: 20110719
  Receipt Date: 20110719
  Transmission Date: 20111222
  Serious: Yes (Other)
  Sender: FDA-Public Use
  Company Number: None

PATIENT
  Sex: Female
  Weight: 90.2658 kg

DRUGS (1)
  1. SUBOXONE [Suspect]
     Indication: DRUG DEPENDENCE
     Dosage: 8MG 2 STRIPS/DAY SUBLING; 2MG 2STRIPS/D SUBLINGUAL (DATES OF USE APPROX JUNE 28
     Route: 060

REACTIONS (3)
  - CHEST DISCOMFORT [None]
  - PRODUCT SUBSTITUTION ISSUE [None]
  - HEADACHE [None]
